FAERS Safety Report 7951177-2 (Version None)
Quarter: 2011Q4

REPORT INFORMATION
  Report Type: 
  Country: None (occurrence: None)
  Receive Date: 20111128
  Receipt Date: 20111109
  Transmission Date: 20120403
  Serious: Yes (Life-Threatening, Hospitalization)
  Sender: FDA-Public Use
  Company Number: 021256

PATIENT
  Age: 54 Year
  Sex: Male
  Weight: 69.7 kg

DRUGS (9)
  1. ATELEC (CLINIDIPINE) [Concomitant]
  2. BASEN (VOGLIBOSE) [Concomitant]
  3. CRESTOR [Concomitant]
  4. EPLERENONE [Concomitant]
  5. LASIX [Concomitant]
  6. ASPIRIN [Concomitant]
  7. NIZATIDINE [Concomitant]
  8. LASIX [Concomitant]
  9. PEGAPTANIB SODIUM; PLACEBO (CODE NOT BROKEN) UNKNOWN [Suspect]
     Indication: DIABETIC RETINAL OEDEMA
     Dates: start: 20110627, end: 20110914

REACTIONS (13)
  - HYPERHIDROSIS [None]
  - HEART RATE INCREASED [None]
  - LIVER FUNCTION TEST ABNORMAL [None]
  - COUGH [None]
  - DEHYDRATION [None]
  - URINARY TRACT INFECTION [None]
  - CEREBRAL INFARCTION [None]
  - DISSEMINATED INTRAVASCULAR COAGULATION [None]
  - RHABDOMYOLYSIS [None]
  - CARDIAC FAILURE [None]
  - SEPSIS [None]
  - BLOOD UREA INCREASED [None]
  - BLOOD CREATININE INCREASED [None]
